FAERS Safety Report 9120256 (Version 2)
Quarter: 2013Q1

REPORT INFORMATION
  Report Type: Report from Study
  Country: DE (occurrence: DE)
  Receive Date: 20130226
  Receipt Date: 20130320
  Transmission Date: 20140127
  Serious: Yes (Hospitalization)
  Sender: FDA-Public Use
  Company Number: DE-UCBSA-078785

PATIENT
  Age: 43 Year
  Sex: Female

DRUGS (5)
  1. VIMPAT [Suspect]
     Indication: EPILEPSY
     Dosage: STARTING DOSE:50 MG
     Dates: start: 20100708, end: 2010
  2. VIMPAT [Suspect]
     Indication: EPILEPSY
     Dosage: DOSE: 200 MG
     Dates: start: 2010
  3. VIMPAT [Suspect]
     Indication: EPILEPSY
     Dosage: DOSE: 250 MG
     Dates: end: 20110125
  4. LEVETIRACETAM [Concomitant]
     Indication: EPILEPSY
     Dosage: DOSE: 3000 MG
     Dates: end: 2010
  5. LEVETIRACETAM [Concomitant]
     Indication: EPILEPSY
     Dosage: DOSE: 2500 MG
     Dates: start: 2010

REACTIONS (2)
  - Epilepsy [Unknown]
  - Drug ineffective [Recovered/Resolved]
